FAERS Safety Report 25634753 (Version 1)
Quarter: 2025Q3

REPORT INFORMATION
  Report Type: Spontaneous
  Country: CN (occurrence: CN)
  Receive Date: 20250801
  Receipt Date: 20250801
  Transmission Date: 20251020
  Serious: Yes (Other)
  Sender: MERCK SHARP & DOHME LLC
  Company Number: CN-009507513-2314796

PATIENT
  Age: 26 Year
  Sex: Female

DRUGS (3)
  1. TEMOZOLOMIDE [Suspect]
     Active Substance: TEMOZOLOMIDE
     Indication: Glioblastoma
     Dosage: 75 MG/M2 DAILY FOR 42 DAYS CONCOMITANT WITH LOCAL RADIOTHERAPY (60 GY ADMINISTERED IN 30 FRACTION...
     Route: 048
     Dates: start: 202009, end: 2020
  2. TEMOZOLOMIDE [Suspect]
     Active Substance: TEMOZOLOMIDE
     Indication: Glioblastoma
     Route: 048
     Dates: start: 2020
  3. TEMOZOLOMIDE [Suspect]
     Active Substance: TEMOZOLOMIDE
     Indication: Glioblastoma
     Route: 048
     Dates: start: 2020, end: 202105

REACTIONS (5)
  - Glioblastoma [Unknown]
  - Pyrexia [Unknown]
  - Incision site seroma [Unknown]
  - Recurrent cancer [Unknown]
  - Staphylococcal infection [Unknown]

NARRATIVE: CASE EVENT DATE: 20201025
